FAERS Safety Report 5954047-4 (Version None)
Quarter: 2008Q4

REPORT INFORMATION
  Report Type: 
  Country: None (occurrence: None)
  Receive Date: 20081114
  Receipt Date: 20081106
  Transmission Date: 20090506
  Serious: Yes (Other)
  Sender: FDA-Public Use
  Company Number: BR-PFIZER INC-2008094512

PATIENT
  Sex: Female
  Weight: 42 kg

DRUGS (2)
  1. REVATIO [Suspect]
     Indication: PULMONARY HYPERTENSION
     Route: 048
     Dates: start: 20060101
  2. BOSENTAN [Concomitant]

REACTIONS (2)
  - FATIGUE [None]
  - TACHYCARDIA [None]
